FAERS Safety Report 5052906-0 (Version None)
Quarter: 2006Q3

REPORT INFORMATION
  Report Type: 
  Country: None (occurrence: None)
  Receive Date: 20060712
  Receipt Date: 20060702
  Transmission Date: 20061208
  Serious: Yes (Other)
  Sender: FDA-Public Use
  Company Number: 2006082906

PATIENT
  Age: 17 Year
  Sex: Male

DRUGS (1)
  1. DRAMAMINE [Suspect]
     Indication: EUPHORIC MOOD
     Dosage: 12 TABLETS ONCE, ORAL
     Route: 048
     Dates: start: 20060702, end: 20060702

REACTIONS (2)
  - FATIGUE [None]
  - INTENTIONAL DRUG MISUSE [None]
